FAERS Safety Report 5160935-1 (Version None)
Quarter: 2006Q4

REPORT INFORMATION
  Report Type: 
  Country: None (occurrence: None)
  Receive Date: 20061130
  Receipt Date: 20051202
  Transmission Date: 20070319
  Serious: No
  Sender: FDA-Public Use
  Company Number: US-BRISTOL-MYERS SQUIBB COMPANY-13202312

PATIENT
  Age: 77 Year
  Sex: Male
  Weight: 82 kg

DRUGS (3)
  1. AVALIDE [Suspect]
     Indication: BLOOD PRESSURE MANAGEMENT
     Dosage: DURATION: 5 MONTHS
     Route: 048
     Dates: start: 20050101
  2. NIACIN [Concomitant]
     Dosage: DURATION: 1 MONTH
     Dates: start: 20050101
  3. ASPIRIN [Concomitant]

REACTIONS (1)
  - HYPOAESTHESIA [None]
